FAERS Safety Report 9016520 (Version 2)
Quarter: 2013Q2

REPORT INFORMATION
  Report Type: Spontaneous
  Country: US (occurrence: US)
  Receive Date: 20130116
  Receipt Date: 20130509
  Transmission Date: 20140414
  Serious: Yes (Death, Other)
  Sender: FDA-Public Use
  Company Number: US-BAYER-2013-003137

PATIENT
  Age: 30 Year
  Sex: Female
  Weight: 81.63 kg

DRUGS (4)
  1. YAZ [Suspect]
     Dosage: UNK
     Dates: start: 20080101, end: 20101128
  2. YASMIN [Suspect]
  3. OCELLA [Suspect]
  4. GIANVI [Suspect]

REACTIONS (2)
  - Thrombosis [None]
  - Pulmonary embolism [Fatal]
